FAERS Safety Report 6826044-8 (Version None)
Quarter: 2010Q3

REPORT INFORMATION
  Report Type: 
  Country: None (occurrence: None)
  Receive Date: 20100709
  Receipt Date: 20100701
  Transmission Date: 20110219
  Serious: Yes (Other)
  Sender: FDA-Public Use
  Company Number: GB-ASTRAZENECA-2010SE30713

PATIENT
  Age: 67 Year
  Sex: Female

DRUGS (1)
  1. ATENOLOL [Suspect]
     Indication: HYPERTENSION
     Route: 048

REACTIONS (2)
  - NECK PAIN [None]
  - PAIN IN EXTREMITY [None]
